FAERS Safety Report 5903063-7 (Version None)
Quarter: 2008Q3

REPORT INFORMATION
  Report Type: 
  Country: None (occurrence: None)
  Receive Date: 20080930
  Receipt Date: 20080920
  Transmission Date: 20090109
  Serious: Yes (Death)
  Sender: FDA-Public Use
  Company Number: US-ROCHE-587387

PATIENT
  Sex: Female
  Weight: 59.9 kg

DRUGS (2)
  1. CAPECITABINE [Suspect]
     Indication: BREAST CANCER
     Dosage: DOSE: 2000 MG AM, 2000 MG PM
     Route: 048
  2. VICODIN [Concomitant]

REACTIONS (1)
  - DEATH [None]
